FAERS Safety Report 14281249 (Version 2)
Quarter: 2018Q1

REPORT INFORMATION
  Report Type: Spontaneous
  Country: TR (occurrence: TR)
  Receive Date: 20171213
  Receipt Date: 20180103
  Transmission Date: 20180508
  Serious: Yes (Other)
  Sender: FDA-Public Use
  Company Number: TR-AMGEN-USASP2017182422

PATIENT
  Age: 6 Year
  Sex: Male

DRUGS (1)
  1. ROMIPLOSTIM [Suspect]
     Active Substance: ROMIPLOSTIM
     Indication: IMMUNE THROMBOCYTOPENIC PURPURA
     Dosage: UNK UNK, QWK
     Route: 065

REACTIONS (3)
  - Autoimmune disorder [Unknown]
  - Off label use [Unknown]
  - Autoimmune haemolytic anaemia [Recovering/Resolving]
